FAERS Safety Report 5195185-6 (Version None)
Quarter: 2006Q4

REPORT INFORMATION
  Report Type: 
  Country: None (occurrence: None)
  Receive Date: 20061130
  Receipt Date: 20060619
  Transmission Date: 20070319
  Serious: Yes (Other)
  Sender: FDA-Public Use
  Company Number: WAES 0606USA03367

PATIENT
  Age: 78 Year
  Sex: Female
  Weight: 68.9467 kg

DRUGS (11)
  1. FOSAMAX [Suspect]
     Indication: OSTEOPENIA
     Dosage: PO
     Route: 048
     Dates: end: 20060531
  2. FOSAMAX [Suspect]
     Indication: OSTEOPOROSIS
     Dosage: PO
     Route: 048
     Dates: end: 20060531
  3. ATIVAN [Concomitant]
  4. CATAPRES [Concomitant]
  5. COUMADIN [Concomitant]
  6. DYAZIDE [Concomitant]
  7. LASIX [Concomitant]
  8. LIPITOR [Concomitant]
  9. LORTAB [Concomitant]
  10. PROCARDIA [Concomitant]
  11. ATENOLOL [Concomitant]

REACTIONS (1)
  - OSTEONECROSIS [None]
